FAERS Safety Report 8023323-6 (Version None)
Quarter: 2012Q1

REPORT INFORMATION
  Report Type: 
  Country: None (occurrence: None)
  Receive Date: 20120104
  Receipt Date: 20111227
  Transmission Date: 20120608
  Serious: Yes (Life-Threatening, Other)
  Sender: FDA-Public Use
  Company Number: JP-ROCHE-1024101

PATIENT
  Sex: Male
  Weight: 50 kg

DRUGS (7)
  1. MIRCERA [Suspect]
     Indication: NEPHROGENIC ANAEMIA
     Route: 042
     Dates: start: 20110901, end: 20111001
  2. NOVORAPID [Concomitant]
     Indication: DIABETES MELLITUS
     Route: 058
  3. OXAROL [Concomitant]
     Indication: HYPERPARATHYROIDISM SECONDARY
     Route: 042
     Dates: start: 20110212, end: 20111206
  4. MIRCERA [Suspect]
     Route: 042
     Dates: start: 20111101, end: 20111101
  5. FUROSEMIDE [Concomitant]
     Indication: OEDEMA
     Route: 048
  6. DIOVAN [Concomitant]
     Indication: HYPERTENSION
     Route: 048
  7. ONEALFA [Concomitant]
     Indication: RENAL FAILURE CHRONIC
     Route: 048

REACTIONS (2)
  - APLASTIC ANAEMIA [None]
  - LUNG NEOPLASM MALIGNANT [None]
